FAERS Safety Report 8191908-2 (Version None)
Quarter: 2012Q1

REPORT INFORMATION
  Report Type: 
  Country: None (occurrence: None)
  Receive Date: 20120307
  Receipt Date: 20120228
  Transmission Date: 20120608
  Serious: Yes (Hospitalization)
  Sender: FDA-Public Use
  Company Number: PHHY2012FR018381

PATIENT
  Sex: Male

DRUGS (15)
  1. ACETAMINOPHEN [Suspect]
     Route: 048
     Dates: start: 20101101
  2. PAMIDRONIC ACID [Suspect]
     Dosage: 60 MG, UNK
     Route: 042
     Dates: start: 20111114
  3. CELIPROLOL [Suspect]
     Dosage: 200 MG, DAILY
     Route: 048
     Dates: start: 20050101
  4. MORPHINE SULFATE [Suspect]
     Route: 048
     Dates: start: 20060701
  5. MORPHINE SULFATE [Suspect]
     Route: 048
     Dates: start: 20061001
  6. PAMIDRONIC ACID [Suspect]
     Dosage: 60 MG, UNK
     Route: 042
     Dates: start: 20111017
  7. OMEPRAZOLE [Suspect]
     Route: 048
     Dates: start: 20050101
  8. MORPHINE SULFATE [Suspect]
     Dates: start: 20101101
  9. ANAFRANIL [Suspect]
     Dosage: 100 MG, DAILY
     Route: 048
     Dates: start: 20110402
  10. MORPHINE SULFATE [Suspect]
     Route: 048
     Dates: start: 20101101
  11. PAMIDRONIC ACID [Suspect]
     Dosage: 60 MG, UNK
     Route: 042
     Dates: start: 20111102
  12. MOTILIUM [Suspect]
     Route: 048
     Dates: start: 20060701
  13. VOLTAREN [Suspect]
     Dosage: 75 MG, DAILY
     Route: 048
     Dates: start: 20101101
  14. ACETAMINOPHEN [Suspect]
     Dosage: 3 G, DAILY
     Route: 048
     Dates: start: 20050101
  15. PAMIDRONIC ACID [Suspect]
     Dosage: 60 MG, UNK
     Route: 042
     Dates: start: 20111212

REACTIONS (1)
  - SCLERODERMA [None]
